FAERS Safety Report 6164822-1 (Version None)
Quarter: 2009Q2

REPORT INFORMATION
  Report Type: 
  Country: None (occurrence: None)
  Receive Date: 20090423
  Receipt Date: 20090414
  Transmission Date: 20091009
  Serious: Yes (Hospitalization)
  Sender: FDA-Public Use
  Company Number: PHHY2009DE14323

PATIENT
  Sex: Female

DRUGS (2)
  1. ESTRADERM [Suspect]
     Indication: HORMONE REPLACEMENT THERAPY
     Dosage: 50 UG
     Route: 062
  2. ESTRADERM [Suspect]
     Dosage: 25 UG
     Route: 062

REACTIONS (1)
  - HYPERTENSIVE CRISIS [None]
